FAERS Safety Report 5639026-9 (Version None)
Quarter: 2008Q1

REPORT INFORMATION
  Report Type: 
  Country: None (occurrence: None)
  Receive Date: 20080222
  Receipt Date: 20080202
  Transmission Date: 20080703
  Serious: Yes (Hospitalization)
  Sender: FDA-Public Use
  Company Number: ENT 2008-0015

PATIENT
  Age: 73 Year
  Sex: Female

DRUGS (7)
  1. COMTAN [Suspect]
     Indication: PARKINSON'S DISEASE
     Dosage: 300 MG, GASTROENTERAL USE
  2. PLETAL [Concomitant]
  3. POLARAMINE [Concomitant]
  4. CARBIDOPA AND LEVODOPA [Concomitant]
  5. LAC B [Concomitant]
  6. SELBEX [Concomitant]
  7. PANTOSIN [Concomitant]

REACTIONS (1)
  - REGURGITATION [None]
